FAERS Safety Report 24771205 (Version 1)
Quarter: 2024Q4

REPORT INFORMATION
  Report Type: Spontaneous
  Country: US (occurrence: None)
  Receive Date: 20241224
  Receipt Date: 20241224
  Transmission Date: 20250114
  Serious: Yes (Hospitalization)
  Sender: Public
  Company Number: None

PATIENT
  Age: 62 Year
  Sex: Male
  Weight: 59 kg

DRUGS (5)
  1. IVERMECTIN [Suspect]
     Active Substance: IVERMECTIN
     Indication: Bladder cancer
     Dosage: FREQUENCY : DAILY;?
     Route: 048
  2. ONDANSETRON [Concomitant]
     Active Substance: ONDANSETRON
  3. MORPHINE [Concomitant]
     Active Substance: MORPHINE
  4. DRONABINOL [Concomitant]
     Active Substance: DRONABINOL
  5. OXYBUTYNIN [Concomitant]
     Active Substance: OXYBUTYNIN

REACTIONS (6)
  - Product prescribing issue [None]
  - Jaundice [None]
  - Blood bilirubin increased [None]
  - Blood alkaline phosphatase increased [None]
  - Aspartate aminotransferase increased [None]
  - Alanine aminotransferase increased [None]

NARRATIVE: CASE EVENT DATE: 20241223
